FAERS Safety Report 9380502 (Version 1)
Quarter: 2013Q3

REPORT INFORMATION
  Report Type: Spontaneous
  Country: US (occurrence: US)
  Receive Date: 20130702
  Receipt Date: 20130702
  Transmission Date: 20140515
  Serious: No
  Sender: FDA-Public Use
  Company Number: US-VERTEX PHARMACEUTICALS INC-2013-007602

PATIENT
  Age: 54 Year
  Sex: Male
  Weight: 104 kg

DRUGS (5)
  1. INCIVEK [Suspect]
     Indication: HEPATITIS C
     Dosage: 750 MG, TID
     Route: 048
     Dates: start: 20130303, end: 20130503
  2. INCIVEK [Suspect]
     Dosage: 750 MG, TID
     Route: 048
     Dates: start: 20130629
  3. PEGASYS [Suspect]
     Indication: HEPATITIS C
     Dosage: 180 ?G, QW
     Route: 058
     Dates: start: 20130303
  4. RIBAVIRIN [Suspect]
     Indication: HEPATITIS C
     Dosage: 1000 MG, QD
     Dates: start: 20130303
  5. RIBAVIRIN [Suspect]
     Dosage: 800 MG, QD
     Dates: start: 201306

REACTIONS (13)
  - Alanine aminotransferase increased [Unknown]
  - Aspartate aminotransferase increased [Unknown]
  - Visual impairment [Not Recovered/Not Resolved]
  - Insomnia [Recovered/Resolved]
  - Epistaxis [Recovered/Resolved]
  - Foreign body sensation in eyes [Recovered/Resolved]
  - Pharyngeal ulceration [Recovered/Resolved]
  - Nasal dryness [Recovered/Resolved]
  - Myalgia [Unknown]
  - Constipation [Not Recovered/Not Resolved]
  - Eyelid oedema [Recovered/Resolved]
  - Anaemia [Not Recovered/Not Resolved]
  - Dry skin [Recovered/Resolved]
